FAERS Safety Report 9014682 (Version 1)
Quarter: 2013Q1

REPORT INFORMATION
  Report Type: Spontaneous
  Country: IN (occurrence: IN)
  Receive Date: 20130115
  Receipt Date: 20130115
  Transmission Date: 20140127
  Serious: Yes (Hospitalization)
  Sender: FDA-Public Use
  Company Number: IN-009507513-1301IND006126

PATIENT
  Age: 66 Year
  Sex: 0

DRUGS (2)
  1. VIRAFERONPEG [Suspect]
     Dosage: 120 MICROGRAM, QW
     Route: 058
     Dates: start: 20130101
  2. REBETOL [Suspect]
     Route: 048

REACTIONS (1)
  - Blood bilirubin increased [Unknown]
